FAERS Safety Report 4909577-0 (Version None)
Quarter: 2006Q1

REPORT INFORMATION
  Report Type: 
  Country: None (occurrence: None)
  Receive Date: 20060213
  Receipt Date: 20050309
  Transmission Date: 20060701
  Serious: Yes (Hospitalization)
  Sender: FDA-Public Use
  Company Number: US-MERCK-0503USA01998

PATIENT
  Age: 72 Year
  Sex: Male
  Weight: 77 kg

DRUGS (13)
  1. SYNTHROID [Concomitant]
     Route: 065
  2. PROTONIX [Concomitant]
     Route: 065
  3. FERREX [Concomitant]
     Route: 065
  4. BACITRACIN [Concomitant]
     Route: 047
  5. ASPIRIN [Concomitant]
     Route: 065
     Dates: start: 19980101, end: 20040101
  6. VIOXX [Suspect]
     Indication: ARTHRITIS
     Route: 048
     Dates: start: 20000321, end: 20040415
  7. MICRONASE [Concomitant]
     Route: 065
  8. BETAMETHASONE [Concomitant]
     Route: 065
  9. CILOXAN [Concomitant]
     Route: 047
  10. ERYTHROMYCIN [Concomitant]
     Route: 065
  11. TOBRADEX [Concomitant]
     Route: 047
  12. PREDNISOLONE [Concomitant]
     Route: 047
  13. OCUFLOX [Concomitant]
     Route: 047

REACTIONS (63)
  - ABDOMINAL DISTENSION [None]
  - ACUTE MYOCARDIAL INFARCTION [None]
  - ASTHENIA [None]
  - ATRIAL FIBRILLATION [None]
  - AUTONOMIC NEUROPATHY [None]
  - BACTERIAL INFECTION [None]
  - BLOOD CREATININE INCREASED [None]
  - BLOOD UREA INCREASED [None]
  - BRAIN NATRIURETIC PEPTIDE INCREASED [None]
  - CARDIAC FAILURE CONGESTIVE [None]
  - CARDIOMEGALY [None]
  - CARDIOMYOPATHY [None]
  - CEREBRAL ATROPHY [None]
  - CHOLELITHIASIS [None]
  - COMPUTERISED TOMOGRAM ABNORMAL [None]
  - CONSTIPATION [None]
  - COORDINATION ABNORMAL [None]
  - CORONARY ARTERY DISEASE [None]
  - DEHYDRATION [None]
  - DEPRESSION [None]
  - DIABETIC GASTROPARESIS [None]
  - DIABETIC NEUROPATHY [None]
  - DIFFICULTY IN WALKING [None]
  - DYSARTHRIA [None]
  - ECTROPION [None]
  - FALL [None]
  - GAIT DISTURBANCE [None]
  - GASTRITIS [None]
  - GASTROOESOPHAGEAL REFLUX DISEASE [None]
  - HALLUCINATION [None]
  - HEADACHE [None]
  - HIATUS HERNIA [None]
  - HIP FRACTURE [None]
  - HYDRONEPHROSIS [None]
  - HYPOKALAEMIA [None]
  - HYPOTHYROIDISM [None]
  - ILEUS [None]
  - IMPAIRED GASTRIC EMPTYING [None]
  - INTERNATIONAL NORMALISED RATIO INCREASED [None]
  - IRON DEFICIENCY ANAEMIA [None]
  - MASS [None]
  - MELANOCYTIC NAEVUS [None]
  - MENTAL STATUS CHANGES [None]
  - MITRAL VALVE INCOMPETENCE [None]
  - MITRAL VALVE PROLAPSE [None]
  - MOLE EXCISION [None]
  - MYOCARDIAL INFARCTION [None]
  - OESOPHAGEAL DISORDER [None]
  - OESOPHAGEAL OBSTRUCTION [None]
  - PHIMOSIS [None]
  - PLEURAL EFFUSION [None]
  - QRS AXIS ABNORMAL [None]
  - RENAL ATROPHY [None]
  - RENAL MASS [None]
  - SKIN CANCER [None]
  - STAPHYLOCOCCAL INFECTION [None]
  - URINARY RETENTION [None]
  - URINARY TRACT INFECTION [None]
  - URINARY TRACT OBSTRUCTION [None]
  - VENTRICULAR TACHYCARDIA [None]
  - VERTIGO [None]
  - VISION BLURRED [None]
  - WEIGHT DECREASED [None]
